FAERS Safety Report 6159223-6 (Version None)
Quarter: 2009Q2

REPORT INFORMATION
  Report Type: 
  Country: None (occurrence: None)
  Receive Date: 20090417
  Receipt Date: 20090402
  Transmission Date: 20091009
  Serious: Yes (Other)
  Sender: FDA-Public Use
  Company Number: JP-PFIZER INC-2009196408

PATIENT

DRUGS (9)
  1. CELECOX [Suspect]
     Indication: ARTHRALGIA
     Dosage: 200 MG, UNK
     Route: 048
     Dates: start: 20090318
  2. MICARDIS [Concomitant]
     Dosage: UNK
     Dates: start: 20090318
  3. LIPITOR [Concomitant]
     Dosage: 10 MG, UNK
     Dates: start: 20080601
  4. MYSLEE [Concomitant]
     Dosage: 10 MG, UNK
     Dates: start: 20080601
  5. PARIET [Concomitant]
     Dosage: UNK
     Route: 048
     Dates: start: 20090318
  6. OPALMON [Concomitant]
     Dosage: UNK
     Route: 048
     Dates: start: 20090318
  7. TENAXIL [Concomitant]
     Dosage: UNK
     Route: 048
     Dates: start: 20090318
  8. VALSARTAN [Concomitant]
     Dosage: UNK
     Dates: end: 20090317
  9. PLAVIX [Concomitant]
     Dosage: UNK
     Dates: end: 20090317

REACTIONS (1)
  - TOXIC SKIN ERUPTION [None]
